FAERS Safety Report 8310209-2 (Version None)
Quarter: 2012Q2

REPORT INFORMATION
  Report Type: 
  Country: None (occurrence: None)
  Receive Date: 20120425
  Receipt Date: 20120410
  Transmission Date: 20120825
  Serious: Yes (Death, Life-Threatening, Hospitalization, Other)
  Sender: FDA-Public Use
  Company Number: US-MYLANLABS-2009AC000398

PATIENT
  Age: 88 Year
  Sex: Female

DRUGS (22)
  1. DIGOXIN [Suspect]
     Route: 048
     Dates: start: 20080101, end: 20080330
  2. HUMALOG [Concomitant]
  3. LASIX [Concomitant]
  4. LANTUS [Concomitant]
  5. GUAIFENESIN [Concomitant]
  6. HYDROCODONE BITARTRATE [Concomitant]
  7. DIOVAN [Concomitant]
  8. PROTONIX [Concomitant]
  9. POTASSIUM CHLORIDE [Concomitant]
  10. CRESTOR [Concomitant]
  11. CATAPRES [Concomitant]
  12. FLAGYL [Concomitant]
  13. INDOMETHACIN [Concomitant]
  14. ATENOLOL [Concomitant]
  15. LEVAQUIN [Concomitant]
  16. DYAZIDE [Concomitant]
  17. NITROFURANTOIN [Concomitant]
  18. GENTAMICIN [Concomitant]
  19. ASPIRIN [Concomitant]
  20. AMLODIPINE [Concomitant]
  21. POTASSIUM CHLORIDE [Concomitant]
  22. NEXIUM [Concomitant]

REACTIONS (49)
  - EMOTIONAL DISTRESS [None]
  - DEATH [None]
  - MECHANICAL VENTILATION [None]
  - NASAL CONGESTION [None]
  - FREQUENT BOWEL MOVEMENTS [None]
  - SOCIAL AVOIDANT BEHAVIOUR [None]
  - ATRIOVENTRICULAR BLOCK [None]
  - WHEEZING [None]
  - AORTIC ARTERIOSCLEROSIS [None]
  - VENTRICULAR EXTRASYSTOLES [None]
  - CARDIOMEGALY [None]
  - ILL-DEFINED DISORDER [None]
  - ATRIAL FIBRILLATION [None]
  - ENDOTRACHEAL INTUBATION [None]
  - PNEUMONIA ASPIRATION [None]
  - ARTERIOSCLEROSIS [None]
  - COUGH [None]
  - HYPERTENSION [None]
  - TYPE 2 DIABETES MELLITUS [None]
  - NAUSEA [None]
  - CARDIAC FAILURE CONGESTIVE [None]
  - CORONARY ARTERY DISEASE [None]
  - PLEURAL EFFUSION [None]
  - TREATMENT NONCOMPLIANCE [None]
  - ABDOMINAL PAIN [None]
  - HYPERCHOLESTEROLAEMIA [None]
  - INJURY [None]
  - ECONOMIC PROBLEM [None]
  - SUPRAVENTRICULAR TACHYCARDIA [None]
  - ANAEMIA [None]
  - PERIPHERAL VASCULAR DISORDER [None]
  - DYSPNOEA [None]
  - OEDEMA [None]
  - COLITIS ISCHAEMIC [None]
  - PAIN [None]
  - LOSS OF EMPLOYMENT [None]
  - ASTHENIA [None]
  - OEDEMA PERIPHERAL [None]
  - FEELING ABNORMAL [None]
  - URINARY TRACT INFECTION ENTEROCOCCAL [None]
  - RENAL FAILURE CHRONIC [None]
  - HYPOGLYCAEMIA [None]
  - DYSPHAGIA [None]
  - FATIGUE [None]
  - RESPIRATORY ARREST [None]
  - ATELECTASIS [None]
  - RESPIRATORY DISTRESS [None]
  - CONSTIPATION [None]
  - VOMITING [None]
